FAERS Safety Report 8550902 (Version 17)
Quarter: 2014Q4

REPORT INFORMATION
  Report Type: Report from Study
  Country: CA (occurrence: CA)
  Receive Date: 20120508
  Receipt Date: 20141222
  Transmission Date: 20150529
  Serious: Yes (Hospitalization, Other)
  Sender: FDA-Public Use
  Company Number: PHHY2012CA038477

PATIENT
  Age: 87 Year
  Sex: Male

DRUGS (1)
  1. SANDOSTATIN LAR DEPOT [Suspect]
     Active Substance: OCTREOTIDE ACETATE
     Indication: NEUROENDOCRINE TUMOUR
     Dosage: 30 MG, EVERY 4 WEEKS
     Route: 030
     Dates: start: 20100928

REACTIONS (30)
  - Respiratory tract congestion [Unknown]
  - Weight decreased [Recovering/Resolving]
  - Neoplasm skin [Unknown]
  - Abasia [Unknown]
  - Upper respiratory tract infection [Unknown]
  - Nausea [Unknown]
  - Asthenia [Unknown]
  - Cerebrovascular accident [Recovering/Resolving]
  - Intestinal obstruction [Unknown]
  - Pyrexia [Unknown]
  - Depressed mood [Unknown]
  - Tremor [Unknown]
  - Joint swelling [Unknown]
  - Gait disturbance [Unknown]
  - Oedema [Unknown]
  - Heart rate decreased [Unknown]
  - Choking [Unknown]
  - Cough [Recovered/Resolved]
  - Wound haemorrhage [Recovered/Resolved]
  - Productive cough [Not Recovered/Not Resolved]
  - Dizziness [Unknown]
  - Pneumonia [Recovered/Resolved]
  - Malaise [Unknown]
  - Fatigue [Unknown]
  - Vomiting [Unknown]
  - Blindness unilateral [Unknown]
  - Cystitis [Unknown]
  - Visual acuity reduced [Recovering/Resolving]
  - Myocardial infarction [Unknown]
  - Oedema peripheral [Not Recovered/Not Resolved]

NARRATIVE: CASE EVENT DATE: 201112
